FAERS Safety Report 20808673 (Version 1)
Quarter: 2022Q2

REPORT INFORMATION
  Report Type: Spontaneous
  Country: US (occurrence: None)
  Receive Date: 20220509
  Receipt Date: 20220509
  Transmission Date: 20220721
  Serious: Yes (Life-Threatening, Disabling, Other)
  Sender: FDA-Public Use
  Company Number: None

PATIENT
  Age: 49 Year
  Sex: Female
  Weight: 138.15 kg

DRUGS (4)
  1. LISINOPRIL [Suspect]
     Active Substance: LISINOPRIL
     Indication: Blood pressure measurement
  2. ALBUTEROL [Concomitant]
     Active Substance: ALBUTEROL
  3. nebulizer monitor system [Concomitant]
  4. victim E [Concomitant]

REACTIONS (16)
  - Liver disorder [None]
  - Renal disorder [None]
  - Pain [None]
  - Asthenia [None]
  - Dry eye [None]
  - Bone disorder [None]
  - Feeling abnormal [None]
  - Memory impairment [None]
  - Economic problem [None]
  - Cough [None]
  - Rash [None]
  - Gastric disorder [None]
  - Uterine leiomyoma [None]
  - Musculoskeletal pain [None]
  - Peripheral swelling [None]
  - Cardiac disorder [None]

NARRATIVE: CASE EVENT DATE: 20200315
